FAERS Safety Report 5581711-1 (Version None)
Quarter: 2008Q1

REPORT INFORMATION
  Report Type: 
  Country: None (occurrence: None)
  Receive Date: 20080104
  Receipt Date: 20071227
  Transmission Date: 20080703
  Serious: Yes (Other)
  Sender: FDA-Public Use
  Company Number: US-JNJFOC-20071103673

PATIENT
  Sex: Male
  Weight: 106.6 kg

DRUGS (7)
  1. INVEGA [Suspect]
     Indication: POST-TRAUMATIC STRESS DISORDER
     Route: 048
  2. INVEGA [Suspect]
     Indication: SCHIZOPHRENIA
     Route: 048
  3. VYTORIN [Concomitant]
     Indication: HYPERLIPIDAEMIA
     Route: 065
  4. MICARDIS [Concomitant]
     Indication: HYPERTENSION
     Route: 065
  5. CARDIZEM CD [Concomitant]
     Indication: HYPERTENSION
     Route: 065
  6. HYDROCHLOROTHIAZIDE [Concomitant]
     Indication: HYPERTENSION
     Route: 065
  7. TOPAMAX [Concomitant]
     Indication: MIGRAINE
     Route: 065

REACTIONS (3)
  - RASH [None]
  - STEVENS-JOHNSON SYNDROME [None]
  - STOMATITIS [None]
